FAERS Safety Report 8307891-2 (Version None)
Quarter: 2012Q2

REPORT INFORMATION
  Report Type: 
  Country: None (occurrence: None)
  Receive Date: 20120424
  Receipt Date: 20120417
  Transmission Date: 20120825
  Serious: Yes (Hospitalization)
  Sender: FDA-Public Use
  Company Number: LT-GLAXOSMITHKLINE-A0974707A

PATIENT
  Age: 27 Year
  Sex: Female
  Weight: 60 kg

DRUGS (2)
  1. ETHANOL [Suspect]
  2. NICORETTE [Suspect]
     Dosage: 12GUM SINGLE DOSE
     Route: 002

REACTIONS (5)
  - NAUSEA [None]
  - VOMITING [None]
  - SUICIDE ATTEMPT [None]
  - DIZZINESS [None]
  - ASTHENIA [None]
